FAERS Safety Report 4978964-7 (Version None)
Quarter: 2006Q2

REPORT INFORMATION
  Report Type: 
  Country: None (occurrence: None)
  Receive Date: 20060411
  Receipt Date: 20060411
  Transmission Date: 20061013
  Serious: Yes (Hospitalization)
  Sender: FDA-Public Use
  Company Number: None

PATIENT
  Age: 70 Year
  Sex: Female
  Weight: 93.8946 kg

DRUGS (2)
  1. VELCADE [Suspect]
     Indication: MALIGNANT MELANOMA
     Dosage: 2.6 G IV BIWEEKLY X 8 WEEKS
     Route: 042
     Dates: start: 20060219, end: 20060331
  2. TEMODAR [Concomitant]

REACTIONS (1)
  - PANCREATITIS [None]
